FAERS Safety Report 6929684-0 (Version None)
Quarter: 2010Q3

REPORT INFORMATION
  Report Type: 
  Country: None (occurrence: None)
  Receive Date: 20100813
  Receipt Date: 20100804
  Transmission Date: 20110219
  Serious: Yes (Death, Hospitalization)
  Sender: FDA-Public Use
  Company Number: 012297

PATIENT
  Sex: Female

DRUGS (23)
  1. CIMZIA [Suspect]
     Indication: CROHN'S DISEASE
     Dosage: SUBCUTANEOUS (400 MG 1X/4 WEEKS SUBCUTANEOUS)
     Route: 058
     Dates: start: 20090519
  2. CIMZIA [Suspect]
     Indication: CROHN'S DISEASE
     Dosage: SUBCUTANEOUS (400 MG 1X/4 WEEKS SUBCUTANEOUS)
     Route: 058
     Dates: start: 20090608
  3. CALCIUM W/VITAMIN D /00188401/ [Concomitant]
  4. SPIRIVA [Concomitant]
  5. ZYPREXA [Concomitant]
  6. CELEXA [Concomitant]
  7. LORAZEPAM [Concomitant]
  8. LORATADINE [Concomitant]
  9. ADVAIR DISKUS 100/50 [Concomitant]
  10. LOPERAMIDE [Concomitant]
  11. ALBUTEROL [Concomitant]
  12. POTASSIUM CHLORIDE [Concomitant]
  13. PROMETHAZINE [Concomitant]
  14. CYANOCOVALAMIN [Concomitant]
  15. NEXIUM [Concomitant]
  16. METOCLORPRAMIDE [Concomitant]
  17. AZATHIOPRINE SODIUM [Concomitant]
  18. ACETAMINOPHEN [Concomitant]
  19. MILK OF MAGNESIA TAB [Concomitant]
  20. FLUTICASONE PROPIONATE [Concomitant]
  21. DESITIN [Concomitant]
  22. PENTASA [Concomitant]
  23. DICYCLOMINE [Concomitant]

REACTIONS (2)
  - CHRONIC OBSTRUCTIVE PULMONARY DISEASE [None]
  - CONDITION AGGRAVATED [None]
